FAERS Safety Report 7946056-0 (Version None)
Quarter: 2011Q4

REPORT INFORMATION
  Report Type: 
  Country: None (occurrence: None)
  Receive Date: 20111129
  Receipt Date: 20111122
  Transmission Date: 20120403
  Serious: Yes (Other)
  Sender: FDA-Public Use
  Company Number: CA-GLAXOSMITHKLINE-A0954508A

PATIENT
  Sex: Female

DRUGS (4)
  1. GLUCOPHAGE [Concomitant]
     Dosage: 50MG TWICE PER DAY
     Route: 065
  2. SYNTHROID [Concomitant]
     Route: 065
  3. INSULIN [Concomitant]
  4. LAMICTAL [Suspect]
     Indication: EPILEPSY
     Dosage: 25MG PER DAY
     Route: 065
     Dates: start: 20110407, end: 20111003

REACTIONS (31)
  - JOINT STIFFNESS [None]
  - COUGH [None]
  - NERVOUSNESS [None]
  - APHONIA [None]
  - ABNORMAL BEHAVIOUR [None]
  - AGGRESSION [None]
  - EYE SWELLING [None]
  - TREMOR [None]
  - TINNITUS [None]
  - IRRITABILITY [None]
  - EYE IRRITATION [None]
  - AFFECT LABILITY [None]
  - OEDEMA PERIPHERAL [None]
  - CRYING [None]
  - FEAR [None]
  - PALPITATIONS [None]
  - ULCER [None]
  - HEADACHE [None]
  - DYSPNOEA EXERTIONAL [None]
  - DIPLOPIA [None]
  - BALANCE DISORDER [None]
  - EMOTIONAL DISORDER [None]
  - DIARRHOEA [None]
  - PAIN IN EXTREMITY [None]
  - ANXIETY [None]
  - MALAISE [None]
  - QUALITY OF LIFE DECREASED [None]
  - VOMITING [None]
  - INSOMNIA [None]
  - EYE PAIN [None]
  - SUICIDAL IDEATION [None]
